FAERS Safety Report 5311657-5 (Version None)
Quarter: 2007Q2

REPORT INFORMATION
  Report Type: 
  Country: None (occurrence: None)
  Receive Date: 20070430
  Receipt Date: 20060530
  Transmission Date: 20071010
  Serious: No
  Sender: FDA-Public Use
  Company Number: 2006UW10357

PATIENT
  Age: 57 Year
  Sex: Female
  Weight: 81.6 kg

DRUGS (3)
  1. ZOMIG [Suspect]
     Indication: MIGRAINE
     Route: 048
  2. MENEST [Concomitant]
  3. PREVACID [Concomitant]

REACTIONS (3)
  - DYSGEUSIA [None]
  - FEELING ABNORMAL [None]
  - MEDICATION ERROR [None]
